FAERS Safety Report 9718290 (Version 1)
Quarter: 2013Q4

REPORT INFORMATION
  Report Type: Spontaneous
  Country: US (occurrence: US)
  Receive Date: 20131125
  Receipt Date: 20131125
  Transmission Date: 20140711
  Serious: No
  Sender: FDA-Public Use
  Company Number: US-VIVUS-2013V1000220

PATIENT
  Age: 58 Year
  Sex: Male
  Weight: 145.28 kg

DRUGS (11)
  1. QSYMIA 3.75MG/23MG [Suspect]
     Indication: WEIGHT DECREASED
     Dosage: DAILY DOSE: 1 CAPSULE,
     Route: 048
     Dates: start: 20130313
  2. LEVOTHYROXINE [Concomitant]
     Indication: HYPOTHYROIDISM
     Route: 048
     Dates: start: 2009
  3. PRILOSEC [Concomitant]
     Indication: GASTROOESOPHAGEAL REFLUX DISEASE
     Route: 048
     Dates: start: 1993
  4. METFORMIN [Concomitant]
     Indication: TYPE 2 DIABETES MELLITUS
     Route: 048
     Dates: start: 2003
  5. GEMFIBROZIL [Concomitant]
     Indication: PRODUCT USED FOR UNKNOWN INDICATION
     Route: 048
     Dates: start: 2003
  6. LANTUS [Concomitant]
     Indication: TYPE 2 DIABETES MELLITUS
     Dosage: DAILY DOSE: 30 UNITS,
     Dates: start: 2010
  7. LANTUS [Concomitant]
     Dosage: DAILY DOSE: 75 UNITS,
     Dates: start: 2010
  8. NOVOLOG [Concomitant]
     Indication: TYPE 2 DIABETES MELLITUS
     Dates: start: 2010
  9. LISINOPRIL [Concomitant]
     Indication: NEPHROPROTECTIVE THERAPY
     Route: 048
     Dates: start: 2007
  10. VYTORIN [Concomitant]
     Route: 048
     Dates: start: 2007
  11. MULTIVITAMINS [Concomitant]
     Indication: MEDICAL DIET
     Route: 048
     Dates: start: 1973

REACTIONS (1)
  - Diarrhoea [Recovered/Resolved]
